FAERS Safety Report 13183895 (Version 2)
Quarter: 2017Q1

REPORT INFORMATION
  Report Type: Spontaneous
  Country: BR (occurrence: BR)
  Receive Date: 20170203
  Receipt Date: 20170215
  Transmission Date: 20170428
  Serious: Yes (Other)
  Sender: FDA-Public Use
  Company Number: BR-ALEXION-A201700858

PATIENT
  Age: 1 Year
  Sex: Male
  Weight: 10.26 kg

DRUGS (2)
  1. SOLIRIS [Suspect]
     Active Substance: ECULIZUMAB
     Dosage: 300 MG, Q3W
     Route: 042
     Dates: start: 20160916
  2. SOLIRIS [Suspect]
     Active Substance: ECULIZUMAB
     Indication: HAEMOLYTIC URAEMIC SYNDROME
     Dosage: 300 MG, QW
     Route: 042
     Dates: start: 20160819, end: 20160827

REACTIONS (10)
  - White blood cell disorder [Not Recovered/Not Resolved]
  - Pyrexia [Recovered/Resolved]
  - Decreased appetite [Unknown]
  - Rhinorrhoea [Unknown]
  - Platelet count decreased [Not Recovered/Not Resolved]
  - Viral infection [Recovered/Resolved]
  - Poor venous access [Not Recovered/Not Resolved]
  - Injection site extravasation [Unknown]
  - Incorrect drug administration duration [Recovered/Resolved]
  - Tearfulness [Unknown]

NARRATIVE: CASE EVENT DATE: 20161218
